FAERS Safety Report 4667635-2 (Version None)
Quarter: 2005Q2

REPORT INFORMATION
  Report Type: 
  Country: None (occurrence: None)
  Receive Date: 20050520
  Receipt Date: 20041122
  Transmission Date: 20051028
  Serious: Yes (Other)
  Sender: FDA-Public Use
  Company Number: PHHO2004ES16589

PATIENT
  Age: 57 Year

DRUGS (1)
  1. AREDIA [Suspect]
     Indication: MULTIPLE MYELOMA
     Dosage: 90MG
     Dates: start: 20010410

REACTIONS (3)
  - ASEPTIC NECROSIS BONE [None]
  - HIP ARTHROPLASTY [None]
  - IMMOBILE [None]
